FAERS Safety Report 15293762 (Version 1)
Quarter: 2018Q3

REPORT INFORMATION
  Report Type: Spontaneous
  Country: US (occurrence: US)
  Receive Date: 20180820
  Receipt Date: 20180820
  Transmission Date: 20181010
  Serious: No
  Sender: FDA-Public Use
  Company Number: US-STRIDES ARCOLAB LIMITED-2017SP012448

PATIENT

DRUGS (5)
  1. ERGOCALCIFEROL. [Suspect]
     Active Substance: ERGOCALCIFEROL
     Indication: VITAMIN D DEFICIENCY
     Dosage: 50000 IU, WEEKLY
     Route: 048
  2. COLESTIPOL [Interacting]
     Active Substance: COLESTIPOL
     Indication: BILE ACID MALABSORPTION
  3. PREDNISOLONE. [Interacting]
     Active Substance: PREDNISOLONE
     Indication: PRODUCT USED FOR UNKNOWN INDICATION
     Dosage: UNK
     Route: 065
  4. COLESTIPOL [Interacting]
     Active Substance: COLESTIPOL
     Indication: DIARRHOEA
     Dosage: UNK
     Route: 065
  5. COLECALCIFEROL [Interacting]
     Active Substance: CHOLECALCIFEROL
     Indication: VITAMIN D DEFICIENCY
     Dosage: 2000 IU, DAILY
     Route: 048
     Dates: start: 2014

REACTIONS (5)
  - Drug interaction [Unknown]
  - Malabsorption [Unknown]
  - Vitamin K deficiency [Unknown]
  - Vitamin D deficiency [Unknown]
  - Drug ineffective [Unknown]
